FAERS Safety Report 4906088-3 (Version None)
Quarter: 2006Q1

REPORT INFORMATION
  Report Type: 
  Country: None (occurrence: None)
  Receive Date: 20060209
  Receipt Date: 20051031
  Transmission Date: 20060701
  Serious: Yes (Other)
  Sender: FDA-Public Use
  Company Number: US-BOEHRINGER INGELHEIM PHARMACEUTICALS, INC.-2005-BP-19079BP

PATIENT
  Sex: Male

DRUGS (1)
  1. FLOMAX [Suspect]
     Route: 048
     Dates: start: 20040801, end: 20051029

REACTIONS (6)
  - ABDOMINAL PAIN [None]
  - CARDIAC MURMUR [None]
  - GASTROINTESTINAL CANDIDIASIS [None]
  - NAUSEA [None]
  - ORTHOSTATIC HYPOTENSION [None]
  - PROSTATE CANCER [None]
